FAERS Safety Report 5353103-1 (Version None)
Quarter: 2007Q2

REPORT INFORMATION
  Report Type: 
  Country: None (occurrence: None)
  Receive Date: 20070611
  Receipt Date: 20070601
  Transmission Date: 20071010
  Serious: Yes (Hospitalization, Other)
  Sender: FDA-Public Use
  Company Number: CH-PFIZER INC-2007045420

PATIENT
  Sex: Male

DRUGS (3)
  1. ACCUPRO [Suspect]
     Indication: HYPERTENSION
     Route: 048
  2. COTRIM [Suspect]
     Indication: PNEUMONIA
  3. IRBESARTAN [Concomitant]

REACTIONS (3)
  - ANGIOEDEMA [None]
  - PNEUMONIA [None]
  - URTICARIA [None]
